FAERS Safety Report 7274301-6 (Version None)
Quarter: 2011Q1

REPORT INFORMATION
  Report Type: 
  Country: None (occurrence: None)
  Receive Date: 20110204
  Receipt Date: 20110124
  Transmission Date: 20110831
  Serious: Yes (Hospitalization)
  Sender: FDA-Public Use
  Company Number: AT-ELI_LILLY_AND_COMPANY-AT201101005628

PATIENT
  Sex: Female

DRUGS (2)
  1. VITAMIN D [Concomitant]
     Dosage: UNK, UNKNOWN
     Route: 065
  2. FORTEO [Suspect]
     Indication: OSTEOPOROSIS
     Dosage: UNK UNK, DAILY (1/D)
     Route: 058
     Dates: start: 20101020

REACTIONS (2)
  - DIARRHOEA [None]
  - BLOOD GLUCOSE FLUCTUATION [None]
